FAERS Safety Report 6728190-6 (Version None)
Quarter: 2010Q2

REPORT INFORMATION
  Report Type: 
  Country: None (occurrence: None)
  Receive Date: 20100517
  Receipt Date: 20100505
  Transmission Date: 20101027
  Serious: Yes (Death)
  Sender: FDA-Public Use
  Company Number: B0651866A

PATIENT
  Sex: Male
  Weight: 70 kg

DRUGS (7)
  1. LAPATINIB [Suspect]
     Indication: GASTRIC CANCER
     Dosage: 1250MG PER DAY
     Route: 048
     Dates: start: 20100326, end: 20100410
  2. CAPECITABINE [Suspect]
     Indication: GASTRIC CANCER
     Dosage: 1700MGM2 TWICE PER DAY
     Route: 048
     Dates: start: 20100326, end: 20100409
  3. OXALIPLATINE [Suspect]
     Indication: GASTRIC CANCER
     Dosage: 130MGM2 CYCLIC
     Route: 042
  4. ENAPREN [Concomitant]
     Indication: HYPERTENSION
     Dosage: 10MG PER DAY
     Route: 048
     Dates: start: 19900101, end: 20100410
  5. ZYLORIC [Concomitant]
     Dosage: 300MG TWICE PER DAY
     Route: 048
     Dates: start: 20100101, end: 20100410
  6. LASIX [Concomitant]
     Indication: HYPERTENSION
     Dosage: 25MG PER DAY
     Route: 048
     Dates: start: 20100316, end: 20100410
  7. KANRENOL [Concomitant]
     Indication: HYPERTENSION
     Dosage: 50MG PER DAY
     Route: 048
     Dates: start: 20100316, end: 20100410

REACTIONS (1)
  - DIARRHOEA [None]
